FAERS Safety Report 16237357 (Version 1)
Quarter: 2019Q2

REPORT INFORMATION
  Report Type: Spontaneous
  Country: IT (occurrence: IT)
  Receive Date: 20190425
  Receipt Date: 20190425
  Transmission Date: 20190711
  Serious: Yes (Other)
  Sender: FDA-Public Use
  Company Number: IT-TEVA-2019-IT-1041840

PATIENT
  Age: 50 Year
  Sex: Male
  Weight: 76 kg

DRUGS (1)
  1. OXALIPLATINO TEVA [Suspect]
     Active Substance: OXALIPLATIN
     Indication: CHEMOTHERAPY
     Route: 042

REACTIONS (3)
  - Rash [Recovered/Resolved]
  - Throat tightness [Recovered/Resolved]
  - Bronchospasm [Recovered/Resolved]

NARRATIVE: CASE EVENT DATE: 20190404
